FAERS Safety Report 18795587 (Version 5)
Quarter: 2021Q3

REPORT INFORMATION
  Report Type: Spontaneous
  Country: CA (occurrence: CA)
  Receive Date: 20210127
  Receipt Date: 20210804
  Transmission Date: 20211014
  Serious: Yes (Hospitalization, Other)
  Sender: FDA-Public Use
  Company Number: CA-GLAXOSMITHKLINE-CA2021AMR013313

PATIENT
  Age: 11 Year
  Sex: Male

DRUGS (86)
  1. LORAZEPAM. [Suspect]
     Active Substance: LORAZEPAM
     Indication: SEIZURE
     Dosage: 0.5 MG, Z (AS REQUIRED)
     Route: 060
  2. FLUTICASONE PROPIONATE. [Suspect]
     Active Substance: FLUTICASONE PROPIONATE
     Indication: PRODUCT USED FOR UNKNOWN INDICATION
     Dosage: UNK
  3. ASCORBIC ACID. [Suspect]
     Active Substance: ASCORBIC ACID
     Indication: CHILD ABUSE
     Dosage: 1500 MG, 1D
     Route: 048
  4. BACLOFEN. [Suspect]
     Active Substance: BACLOFEN
     Indication: CHILD ABUSE
     Dosage: 20 MG, TID
     Route: 048
  5. CLONIDINE. [Suspect]
     Active Substance: CLONIDINE
     Dosage: 01 MG
  6. DIMENHYDRINATE. [Suspect]
     Active Substance: DIMENHYDRINATE
     Indication: PRURITUS
     Dosage: 12.5 MG, QID
     Route: 048
  7. FISH OIL [Suspect]
     Active Substance: FISH OIL
     Dosage: 400 MG, 1D
     Route: 048
  8. FLUOXETINE [Suspect]
     Active Substance: FLUOXETINE HYDROCHLORIDE
     Indication: CHILD ABUSE
     Dosage: 20 MG, 1D
     Route: 048
  9. FLUTICASONE. [Suspect]
     Active Substance: FLUTICASONE
     Indication: CHILD ABUSE
     Dosage: 250 UG, 1D
     Route: 045
  10. MELATONIN [Suspect]
     Active Substance: MELATONIN
     Indication: SLEEP DEFICIT
     Dosage: 10 MG, 1D
     Route: 048
  11. HYDROXYCHLOROQUINE [Suspect]
     Active Substance: HYDROXYCHLOROQUINE
     Indication: CHILD ABUSE
     Dosage: 400 MG, 1D
     Route: 048
  12. ROBAXACET [Suspect]
     Active Substance: ACETAMINOPHEN\METHOCARBAMOL
     Indication: BACK PAIN
     Dosage: 900 MG, QD
     Route: 048
  13. METHOCARBAMOL + PARACETAMOL [Suspect]
     Active Substance: ACETAMINOPHEN\METHOCARBAMOL
     Indication: PRODUCT USED FOR UNKNOWN INDICATION
     Dosage: UNK UNK, BID
     Route: 048
  14. BISACODYL. [Suspect]
     Active Substance: BISACODYL
     Indication: CHILD ABUSE
     Dosage: 5 MG, 1D
     Route: 048
  15. PHENOBARBITAL. [Suspect]
     Active Substance: PHENOBARBITAL
     Dosage: 30 MG, 1 EVERY 5 DAYS
     Route: 048
  16. EXTRA STRENGTH TYLENOL BACK PAIN [Suspect]
     Active Substance: ACETAMINOPHEN\METHOCARBAMOL
     Indication: CHILD ABUSE
  17. ROBAXISAL [Suspect]
     Active Substance: ASPIRIN\METHOCARBAMOL
     Indication: PRODUCT USED FOR UNKNOWN INDICATION
     Dosage: 400 MG, BID
     Route: 048
  18. LEUPRORELIN [Suspect]
     Active Substance: LEUPROLIDE ACETATE
     Dosage: 7.5 MG, Z, MONTHLY
  19. ARIPIPRAZOLE. [Suspect]
     Active Substance: ARIPIPRAZOLE
     Indication: CHILD ABUSE
     Dosage: 2 MG, TID
     Route: 048
  20. CLONIDINE. [Suspect]
     Active Substance: CLONIDINE
     Indication: CHILD ABUSE
     Dosage: 0.1 MG, 1D
     Route: 048
  21. CLONIDINE. [Suspect]
     Active Substance: CLONIDINE
     Dosage: 0.5 MG, 1D
     Route: 048
  22. DIMENHYDRINATE. [Suspect]
     Active Substance: DIMENHYDRINATE
     Indication: CONSTIPATION
     Dosage: 25 MG, 1D
     Route: 048
  23. DIPHENHYDRAMINE. [Suspect]
     Active Substance: DIPHENHYDRAMINE
     Indication: PRURITUS
     Dosage: 12.5 MG, QID, (1 EVERY 6 HOURS)
     Route: 048
  24. FISH OIL [Suspect]
     Active Substance: FISH OIL
     Indication: CHILD ABUSE
     Dosage: 200 MG, 1D
     Route: 048
  25. HYDROMORPHONE [Suspect]
     Active Substance: HYDROMORPHONE
     Indication: CHILD ABUSE
  26. METHOCARBAMOL. [Suspect]
     Active Substance: METHOCARBAMOL
     Dosage: 400 MG, BID
     Route: 048
  27. PHENOBARBITAL. [Suspect]
     Active Substance: PHENOBARBITAL
     Indication: CHILD ABUSE
     Dosage: 30 MG, BID
     Route: 048
  28. MACROGOL 3350 [Suspect]
     Active Substance: POLYETHYLENE GLYCOL 3350
     Indication: CHILD ABUSE
     Dosage: 30 MG, BID
     Route: 048
  29. SALBUTAMOL [Suspect]
     Active Substance: ALBUTEROL
     Dosage: 100 UG
  30. CHOLECALCIFEROL [Suspect]
     Active Substance: CHOLECALCIFEROL
     Indication: VITAMIN SUPPLEMENTATION
     Dosage: 200 IU, 1D
     Route: 048
  31. CHOLECALCIFEROL [Suspect]
     Active Substance: CHOLECALCIFEROL
     Indication: CHILD ABUSE
     Dosage: 2000 IU, 1D
     Route: 048
  32. KETOROLAC TROMETHAMINE. [Suspect]
     Active Substance: KETOROLAC TROMETHAMINE
     Indication: PAIN
     Dosage: 20 MG, QID, (1 EVERY 6 HOURS)
     Route: 048
  33. MONTELUKAST [Suspect]
     Active Substance: MONTELUKAST SODIUM
     Dosage: 10 MG
     Route: 048
  34. CLOBAZAM. [Suspect]
     Active Substance: CLOBAZAM
     Indication: BACK PAIN
     Dosage: 20 MG, 1 EVERY 5 DAYS
     Route: 048
  35. HYDROMORPHONE [Suspect]
     Active Substance: HYDROMORPHONE
     Indication: PAIN MANAGEMENT
     Dosage: UNK
  36. LEUPRORELIN [Suspect]
     Active Substance: LEUPROLIDE ACETATE
     Indication: PRODUCT USED FOR UNKNOWN INDICATION
     Dosage: 7.5 MG, QD
     Route: 030
  37. FLUOXETINE HYDROCHLORIDE. [Suspect]
     Active Substance: FLUOXETINE HYDROCHLORIDE
     Indication: PRODUCT USED FOR UNKNOWN INDICATION
     Dosage: 20 MG, QD
     Route: 048
  38. SALBUTAMOL [Suspect]
     Active Substance: ALBUTEROL
     Dosage: UNK UNK, Z (AS REQUIRED)
  39. KETOROLAC TROMETHAMINE. [Suspect]
     Active Substance: KETOROLAC TROMETHAMINE
     Indication: CHILD ABUSE
     Dosage: UNK
  40. LORAZEPAM. [Suspect]
     Active Substance: LORAZEPAM
     Indication: CHILD ABUSE
  41. MONTELUKAST [Suspect]
     Active Substance: MONTELUKAST SODIUM
     Indication: CHILD ABUSE
     Dosage: 10 MG, 1D
     Route: 048
  42. OMEGA 3 FISH OIL [Suspect]
     Active Substance: FISH OIL\OMEGA-3 FATTY ACIDS
     Indication: CHILD ABUSE
     Dosage: 200 MG, QD
     Route: 048
  43. OMEGA 3 FISH OIL [Suspect]
     Active Substance: FISH OIL\OMEGA-3 FATTY ACIDS
     Dosage: 400 MG, QD
     Route: 048
  44. KETOROLAC [Suspect]
     Active Substance: KETOROLAC TROMETHAMINE
     Indication: PAIN
     Dosage: 80 MG, QD
     Route: 048
  45. ARIPIPRAZOLE. [Suspect]
     Active Substance: ARIPIPRAZOLE
     Dosage: 2 MG, 1D
     Route: 048
  46. CELECOXIB. [Suspect]
     Active Substance: CELECOXIB
     Indication: CHILD ABUSE
     Dosage: 100 MG, (1 EVERY 5 DAYS)
     Route: 048
  47. DIMENHYDRINATE. [Suspect]
     Active Substance: DIMENHYDRINATE
     Dosage: 25 MG
     Route: 048
  48. GABAPENTIN. [Suspect]
     Active Substance: GABAPENTIN
     Indication: PAIN MANAGEMENT
     Dosage: 600 MG, TID
     Route: 048
  49. LEUPROLIDE ACETATE. [Suspect]
     Active Substance: LEUPROLIDE ACETATE
     Indication: CHILD ABUSE
     Dosage: 7.5 MG, Z (1 EVERY 1 MONTH)
     Route: 030
  50. FLUOXETINE [Suspect]
     Active Substance: FLUOXETINE HYDROCHLORIDE
     Indication: PRODUCT USED FOR UNKNOWN INDICATION
     Dosage: 20 MG, 1D
     Route: 048
  51. EXTRA STRENGTH TYLENOL BACK PAIN [Suspect]
     Active Substance: ACETAMINOPHEN\METHOCARBAMOL
     Indication: BACK PAIN
     Dosage: 400 MG, BID
     Route: 048
  52. ROBAXISAL [Suspect]
     Active Substance: ASPIRIN\METHOCARBAMOL
     Dosage: 500 MG, BID
     Route: 048
  53. SALBUTAMOL [Suspect]
     Active Substance: ALBUTEROL
     Dosage: 1 DF
     Route: 055
  54. LORAZEPAM. [Suspect]
     Active Substance: LORAZEPAM
     Indication: PAIN MANAGEMENT
     Dosage: 2.0 MG, Z (AS REQUIRED)
     Route: 060
  55. RANITIDINE. [Suspect]
     Active Substance: RANITIDINE
     Indication: CHILD ABUSE
     Dosage: 150 MG, 1D
     Route: 048
  56. METHADONE [Suspect]
     Active Substance: METHADONE HYDROCHLORIDE
     Indication: CHILD ABUSE
     Dosage: 2 MG, TID
     Route: 048
  57. CLOBAZAM. [Suspect]
     Active Substance: CLOBAZAM
     Indication: CHILD ABUSE
     Dosage: 20 MG, BID
     Route: 048
  58. CLONIDINE. [Suspect]
     Active Substance: CLONIDINE
     Dosage: 0.05 MG, 1D
     Route: 048
  59. DIMENHYDRINATE. [Suspect]
     Active Substance: DIMENHYDRINATE
     Dosage: UNK
  60. FISH OIL [Suspect]
     Active Substance: FISH OIL
     Dosage: UNK UNK, QD
     Route: 048
  61. GABAPENTIN. [Suspect]
     Active Substance: GABAPENTIN
     Indication: CHILD ABUSE
  62. MELATONIN [Suspect]
     Active Substance: MELATONIN
     Indication: SLEEP DISORDER
  63. POLYETHYLENE GLYCOL [Suspect]
     Active Substance: POLYETHYLENE GLYCOLS
     Indication: PRODUCT USED FOR UNKNOWN INDICATION
     Dosage: 30 MG, BID
     Route: 048
  64. HYDROXYCHLOROQUINE SULFATE. [Suspect]
     Active Substance: HYDROXYCHLOROQUINE SULFATE
     Indication: CHILD ABUSE
     Dosage: 400 MG, QD
     Route: 048
  65. LORAZEPAM. [Suspect]
     Active Substance: LORAZEPAM
     Indication: MUSCLE SPASMS
     Dosage: UNK
  66. METHADONE [Suspect]
     Active Substance: METHADONE HYDROCHLORIDE
     Indication: BACK PAIN
  67. FLUTICASONE FUROATE [Suspect]
     Active Substance: FLUTICASONE FUROATE
     Dosage: 1 DF, QD
     Route: 055
  68. PANTOPRAZOLE [Suspect]
     Active Substance: PANTOPRAZOLE
     Indication: CHILD ABUSE
     Dosage: 40 MG, 1D
     Route: 048
  69. CELECOXIB. [Suspect]
     Active Substance: CELECOXIB
     Indication: PAIN MANAGEMENT
     Dosage: 100 MG, BID
     Route: 048
  70. MELATONIN [Suspect]
     Active Substance: MELATONIN
     Indication: CHILD ABUSE
     Dosage: UNK
  71. VITAMIN C [Suspect]
     Active Substance: ASCORBIC ACID
     Indication: PRODUCT USED FOR UNKNOWN INDICATION
     Dosage: 1500 MG, 1D
     Route: 048
  72. DOCOSAHEXAENOIC ACID [Suspect]
     Active Substance: DOCONEXENT
     Indication: PRODUCT USED FOR UNKNOWN INDICATION
     Dosage: UNK
  73. DIMENHYDRINATE. [Suspect]
     Active Substance: DIMENHYDRINATE
     Indication: CONSTIPATION
     Dosage: 25 MG, QD
     Route: 048
  74. SALBUTAMOL [Suspect]
     Active Substance: ALBUTEROL
     Indication: CHILD ABUSE
     Dosage: 100 UG 1EVRY 4 HRS
     Route: 055
  75. SALBUTAMOL [Suspect]
     Active Substance: ALBUTEROL
     Dosage: 2 DF
     Route: 055
  76. SALBUTAMOL [Suspect]
     Active Substance: ALBUTEROL
     Dosage: 1 DF QID
     Route: 055
  77. BISACODYL. [Suspect]
     Active Substance: BISACODYL
     Dosage: 5 MG, Z
     Route: 048
  78. CHOLECALCIFEROL [Suspect]
     Active Substance: CHOLECALCIFEROL
     Dosage: UNK, 1D
     Route: 048
  79. FLUTICASONE FUROATE [Suspect]
     Active Substance: FLUTICASONE FUROATE
     Indication: CHILD ABUSE
     Dosage: 2 DF
     Route: 055
  80. DIMENHYDRINATE. [Suspect]
     Active Substance: DIMENHYDRINATE
     Indication: CHILD ABUSE
     Dosage: 25 MG, Z
  81. DIPHENHYDRAMINE. [Suspect]
     Active Substance: DIPHENHYDRAMINE
     Indication: CHILD ABUSE
  82. FLUTICASONE. [Suspect]
     Active Substance: FLUTICASONE
     Dosage: 2.0 DF, 1D
     Route: 045
  83. METHOCARBAMOL. [Suspect]
     Active Substance: METHOCARBAMOL
     Indication: CHILD ABUSE
     Dosage: 2 DF, QD
     Route: 048
  84. MACROGOL 3350 [Suspect]
     Active Substance: POLYETHYLENE GLYCOL 3350
     Dosage: 30 MG, (1 EVERY 5 DAYS)
     Route: 048
  85. HYDROMORPHONE HYDROCHLORIDE. [Suspect]
     Active Substance: HYDROMORPHONE HYDROCHLORIDE
     Indication: PAIN MANAGEMENT
     Dosage: UNK
  86. METHOCARBAMOL. [Suspect]
     Active Substance: METHOCARBAMOL
     Indication: PRODUCT USED FOR UNKNOWN INDICATION
     Dosage: UNK

REACTIONS (13)
  - Product use issue [Unknown]
  - Respiratory depression [Recovered/Resolved]
  - Drug ineffective [Unknown]
  - Intentional product misuse [Unknown]
  - Epidural lipomatosis [Recovered/Resolved]
  - Off label use [Unknown]
  - Product prescribing error [Unknown]
  - Drug abuse [Recovered/Resolved]
  - Obesity [Recovered/Resolved]
  - Drug dependence [Recovered/Resolved]
  - Child abuse [Recovered/Resolved]
  - Victim of child abuse [Recovered/Resolved]
  - Juvenile idiopathic arthritis [Recovered/Resolved]
